FAERS Safety Report 4549795-7 (Version None)
Quarter: 2005Q1

REPORT INFORMATION
  Report Type: 
  Country: None (occurrence: None)
  Receive Date: 20050111
  Receipt Date: 20050103
  Transmission Date: 20050727
  Serious: Yes (Hospitalization, Other)
  Sender: FDA-Public Use
  Company Number: NO-MERCK-0501NOR00002

PATIENT
  Age: 59 Year
  Sex: Male

DRUGS (4)
  1. VIOXX [Suspect]
     Indication: OSTEOARTHRITIS
     Route: 048
     Dates: start: 20021101, end: 20041001
  2. SOTALOL HYDROCHLORIDE [Concomitant]
     Route: 048
     Dates: end: 20030513
  3. ASPIRIN AND MAGNESIUM OXIDE [Concomitant]
     Route: 048
  4. PRAVASTATIN SODIUM [Concomitant]
     Route: 048

REACTIONS (4)
  - CARDIAC ARREST [None]
  - CONVULSION [None]
  - MYOCARDIAL INFARCTION [None]
  - VENTRICULAR ARRHYTHMIA [None]
